FAERS Safety Report 9674845 (Version 3)
Quarter: 2013Q4

REPORT INFORMATION
  Report Type: Report from Study
  Country: AR (occurrence: AR)
  Receive Date: 20131107
  Receipt Date: 20131119
  Transmission Date: 20140711
  Serious: Yes (Other)
  Sender: FDA-Public Use
  Company Number: PHHY2013AR122801

PATIENT
  Age: 47 Year
  Sex: Female

DRUGS (2)
  1. ONBREZ [Suspect]
     Indication: ASTHMA
     Dosage: 300 UG, DAILY
     Dates: end: 201208
  2. ONBREZ [Suspect]
     Indication: OFF LABEL USE
     Dosage: 300 UG, DAILY
     Dates: start: 201209

REACTIONS (3)
  - Asthmatic crisis [Recovering/Resolving]
  - Dyspnoea [Recovering/Resolving]
  - Nervousness [Unknown]
